FAERS Safety Report 8457338-0 (Version None)
Quarter: 2012Q2

REPORT INFORMATION
  Report Type: 
  Country: None (occurrence: None)
  Receive Date: 20120621
  Receipt Date: 20120607
  Transmission Date: 20120825
  Serious: No
  Sender: FDA-Public Use
  Company Number: US-ASTRAZENECA-2011SE40494

PATIENT
  Age: 65 Year
  Sex: Female

DRUGS (2)
  1. CRESTOR [Suspect]
     Route: 048
  2. TOPROL-XL [Suspect]
     Route: 048

REACTIONS (5)
  - EYE DISORDER [None]
  - STRESS [None]
  - OEDEMA [None]
  - BLOOD GLUCOSE INCREASED [None]
  - DIABETES MELLITUS [None]
